FAERS Safety Report 5102070-4 (Version None)
Quarter: 2006Q3

REPORT INFORMATION
  Report Type: 
  Country: None (occurrence: None)
  Receive Date: 20060908
  Receipt Date: 20060818
  Transmission Date: 20061208
  Serious: No
  Sender: FDA-Public Use
  Company Number: US200608004248

PATIENT
  Age: 40 Year
  Sex: Female

DRUGS (1)
  1. CYMBALTA [Suspect]
     Indication: MUSCLE TWITCHING
     Dosage: 30 MG, DAILY (1/D)
     Dates: start: 20050101, end: 20060801

REACTIONS (4)
  - ALCOHOL USE [None]
  - OCULAR ICTERUS [None]
  - PANIC ATTACK [None]
  - TREMOR [None]
